FAERS Safety Report 24924137 (Version 1)
Quarter: 2025Q1

REPORT INFORMATION
  Report Type: Spontaneous
  Country: US (occurrence: US)
  Receive Date: 20250204
  Receipt Date: 20250204
  Transmission Date: 20250408
  Serious: Yes (Other)
  Sender: ELI LILLY AND COMPANY
  Company Number: US-ELI_LILLY_AND_COMPANY-US202501016450

PATIENT
  Sex: Female

DRUGS (20)
  1. ZEPBOUND [Suspect]
     Active Substance: TIRZEPATIDE
     Indication: Product used for unknown indication
     Route: 065
     Dates: start: 202402
  2. ZEPBOUND [Suspect]
     Active Substance: TIRZEPATIDE
     Indication: Product used for unknown indication
     Route: 065
     Dates: start: 202402
  3. ZEPBOUND [Suspect]
     Active Substance: TIRZEPATIDE
     Indication: Product used for unknown indication
     Route: 065
     Dates: start: 202402
  4. ZEPBOUND [Suspect]
     Active Substance: TIRZEPATIDE
     Indication: Product used for unknown indication
     Route: 065
     Dates: start: 202402
  5. ZEPBOUND [Suspect]
     Active Substance: TIRZEPATIDE
     Route: 065
     Dates: start: 202403
  6. ZEPBOUND [Suspect]
     Active Substance: TIRZEPATIDE
     Route: 065
     Dates: start: 202403
  7. ZEPBOUND [Suspect]
     Active Substance: TIRZEPATIDE
     Route: 065
     Dates: start: 202403
  8. ZEPBOUND [Suspect]
     Active Substance: TIRZEPATIDE
     Route: 065
     Dates: start: 202403
  9. ZEPBOUND [Suspect]
     Active Substance: TIRZEPATIDE
     Route: 065
     Dates: start: 202405
  10. ZEPBOUND [Suspect]
     Active Substance: TIRZEPATIDE
     Route: 065
     Dates: start: 202405
  11. ZEPBOUND [Suspect]
     Active Substance: TIRZEPATIDE
     Route: 065
     Dates: start: 202405
  12. ZEPBOUND [Suspect]
     Active Substance: TIRZEPATIDE
     Route: 065
     Dates: start: 202405
  13. ZEPBOUND [Suspect]
     Active Substance: TIRZEPATIDE
     Route: 065
     Dates: start: 202407
  14. ZEPBOUND [Suspect]
     Active Substance: TIRZEPATIDE
     Route: 065
     Dates: start: 202407
  15. ZEPBOUND [Suspect]
     Active Substance: TIRZEPATIDE
     Route: 065
     Dates: start: 202407
  16. ZEPBOUND [Suspect]
     Active Substance: TIRZEPATIDE
     Route: 065
     Dates: start: 202407
  17. ZEPBOUND [Suspect]
     Active Substance: TIRZEPATIDE
     Route: 065
     Dates: start: 202410
  18. ZEPBOUND [Suspect]
     Active Substance: TIRZEPATIDE
     Route: 065
     Dates: start: 202410
  19. ZEPBOUND [Suspect]
     Active Substance: TIRZEPATIDE
     Route: 065
     Dates: start: 202410
  20. ZEPBOUND [Suspect]
     Active Substance: TIRZEPATIDE
     Route: 065
     Dates: start: 202410

REACTIONS (1)
  - Endocrine neoplasm [Unknown]

NARRATIVE: CASE EVENT DATE: 20241201
